FAERS Safety Report 23834911 (Version 6)
Quarter: 2025Q1

REPORT INFORMATION
  Report Type: Spontaneous
  Country: CA (occurrence: CA)
  Receive Date: 20240509
  Receipt Date: 20250222
  Transmission Date: 20250409
  Serious: Yes (Hospitalization, Other)
  Sender: CELLTRION
  Company Number: CA-PFIZER INC-PV202400057396

PATIENT

DRUGS (5)
  1. INFLECTRA [Suspect]
     Active Substance: INFLIXIMAB-DYYB
     Indication: Colitis ulcerative
     Route: 042
     Dates: start: 20240404
  2. INFLECTRA [Suspect]
     Active Substance: INFLIXIMAB-DYYB
     Route: 042
  3. INFLECTRA [Suspect]
     Active Substance: INFLIXIMAB-DYYB
     Route: 042
  4. MESALAMINE [Concomitant]
     Active Substance: MESALAMINE
     Route: 048
     Dates: start: 20170917
  5. PREDNISONE [Concomitant]
     Active Substance: PREDNISONE
     Route: 048
     Dates: start: 20170921

REACTIONS (6)
  - Pneumocystis jirovecii pneumonia [Not Recovered/Not Resolved]
  - Renal failure [Unknown]
  - Cellulitis [Recovering/Resolving]
  - Back pain [Unknown]
  - Pain in extremity [Unknown]
  - Dehydration [Unknown]

NARRATIVE: CASE EVENT DATE: 20240101
